FAERS Safety Report 9639324 (Version 1)
Quarter: 2013Q4

REPORT INFORMATION
  Report Type: Spontaneous
  Country: TR (occurrence: TR)
  Receive Date: 20131022
  Receipt Date: 20131022
  Transmission Date: 20140711
  Serious: Yes (Hospitalization, Other)
  Sender: FDA-Public Use
  Company Number: ALCN2013TR005267

PATIENT
  Sex: 0

DRUGS (4)
  1. ALCAINE [Suspect]
     Route: 047
  2. LODOXAMIDE [Suspect]
     Dosage: UNK, Q12H
     Route: 047
  3. DEXAMETHASONE [Suspect]
     Dosage: UNK, Q4H
     Route: 047
  4. CARBOXYMETHYLCELLULOSE SODIUM [Suspect]
     Dosage: UNK, Q4H
     Route: 047

REACTIONS (6)
  - Corneal epithelium defect [Recovered/Resolved with Sequelae]
  - Corneal infiltrates [Recovered/Resolved with Sequelae]
  - Corneal deposits [Recovered/Resolved with Sequelae]
  - Corneal neovascularisation [Not Recovered/Not Resolved]
  - Conjunctival hyperaemia [Recovered/Resolved with Sequelae]
  - Drug abuse [Unknown]
